FAERS Safety Report 5519512-2 (Version None)
Quarter: 2007Q4

REPORT INFORMATION
  Report Type: 
  Country: None (occurrence: None)
  Receive Date: 20071116
  Receipt Date: 20071106
  Transmission Date: 20080405
  Serious: Yes (Hospitalization)
  Sender: FDA-Public Use
  Company Number: US-ELI_LILLY_AND_COMPANY-US200710006060

PATIENT
  Sex: Male

DRUGS (6)
  1. BYETTA [Suspect]
     Indication: TYPE 2 DIABETES MELLITUS
     Dosage: 5 UG, 2/D
     Route: 058
     Dates: start: 20060101
  2. BYETTA [Suspect]
     Dosage: 10 UG, 2/D
     Route: 058
  3. AVANDIA [Concomitant]
     Indication: TYPE 2 DIABETES MELLITUS
     Dosage: 8 MG, DAILY (1/D)
     Dates: end: 20071011
  4. METFORMIN HCL [Concomitant]
     Indication: TYPE 2 DIABETES MELLITUS
     Dosage: 1000 MG, DAILY (1/D)
     Route: 065
     Dates: end: 20071011
  5. GLYBURIDE [Concomitant]
     Indication: TYPE 2 DIABETES MELLITUS
     Dosage: 12 MG, DAILY (1/D)
     Dates: end: 20071011
  6. GLYBURIDE [Concomitant]
     Dosage: 6 MG, DAILY (1/D)
     Route: 065
     Dates: start: 20071012

REACTIONS (2)
  - BLOOD CREATININE INCREASED [None]
  - MYOCARDIAL INFARCTION [None]
